FAERS Safety Report 9351147 (Version 1)
Quarter: 2013Q2

REPORT INFORMATION
  Report Type: Spontaneous
  Country: DK (occurrence: DK)
  Receive Date: 20130617
  Receipt Date: 20130617
  Transmission Date: 20140414
  Serious: Yes (Disabling)
  Sender: FDA-Public Use
  Company Number: DK-EISAI INC-E2020-12502-SPO-DK

PATIENT
  Age: 83 Year
  Sex: Female

DRUGS (1)
  1. ARICEPT [Suspect]
     Indication: DEMENTIA ALZHEIMER^S TYPE
     Route: 048
     Dates: start: 201205, end: 201209

REACTIONS (1)
  - Chronic obstructive pulmonary disease [Recovered/Resolved]
